FAERS Safety Report 12095028 (Version 1)
Quarter: 2016Q1

REPORT INFORMATION
  Report Type: Spontaneous
  Country: CA (occurrence: CA)
  Receive Date: 20160219
  Receipt Date: 20160219
  Transmission Date: 20160526
  Serious: Yes (Death)
  Sender: FDA-Public Use
  Company Number: PHHY2016CA020630

PATIENT
  Age: 14 Month
  Sex: Female

DRUGS (12)
  1. DOXORUBICIN [Suspect]
     Active Substance: DOXORUBICIN
     Indication: NEUROBLASTOMA
     Route: 065
  2. VINCRISTINE [Suspect]
     Active Substance: VINCRISTINE
     Indication: NEUROBLASTOMA
     Route: 065
  3. METHYLPREDNISOLONE. [Suspect]
     Active Substance: METHYLPREDNISOLONE
     Indication: HISTIOCYTOSIS HAEMATOPHAGIC
     Route: 065
  4. MEROPENEM. [Suspect]
     Active Substance: MEROPENEM
     Indication: PYREXIA
     Route: 065
  5. VANCOMYCIN [Suspect]
     Active Substance: VANCOMYCIN
     Indication: PYREXIA
     Route: 065
  6. CYCLOPHOSPHAMIDE. [Suspect]
     Active Substance: CYCLOPHOSPHAMIDE
     Indication: NEUROBLASTOMA
     Route: 065
  7. METRONIDAZOLE. [Suspect]
     Active Substance: METRONIDAZOLE
     Indication: INFECTIOUS COLITIS
     Route: 065
  8. ETOPOSIDE. [Suspect]
     Active Substance: ETOPOSIDE
     Indication: HISTIOCYTOSIS HAEMATOPHAGIC
     Dosage: 150 MG/M2, DAILY
     Route: 065
  9. FLUCONAZOL [Suspect]
     Active Substance: FLUCONAZOLE
     Indication: PYREXIA
     Route: 065
  10. CISPLATIN. [Suspect]
     Active Substance: CISPLATIN
     Indication: NEUROBLASTOMA
     Dosage: 20 MG/M2, UNK
     Route: 065
  11. TENIPOSIDE. [Suspect]
     Active Substance: TENIPOSIDE
     Indication: NEUROBLASTOMA
     Route: 065
  12. PIPERACILLIN, TAZOBACTAM [Suspect]
     Active Substance: PIPERACILLIN SODIUM\TAZOBACTAM SODIUM
     Indication: INFECTIOUS COLITIS
     Route: 065

REACTIONS (3)
  - Histiocytosis haematophagic [Fatal]
  - Low cardiac output syndrome [Fatal]
  - Multiple organ dysfunction syndrome [Fatal]
